FAERS Safety Report 18526845 (Version 1)
Quarter: 2020Q4

REPORT INFORMATION
  Report Type: Spontaneous
  Country: US (occurrence: US)
  Receive Date: 20201119
  Receipt Date: 20201119
  Transmission Date: 20210114
  Serious: Yes (Hospitalization)
  Sender: FDA-Public Use
  Company Number: None

PATIENT
  Age: 86 Year
  Sex: Male

DRUGS (8)
  1. IMATINIB , 400MG [Suspect]
     Active Substance: IMATINIB
     Indication: CARCINOID TUMOUR OF THE STOMACH
     Route: 048
     Dates: start: 20180119
  2. CEFUROXIME. [Concomitant]
     Active Substance: CEFUROXIME
  3. ATORVASTATIN [Concomitant]
     Active Substance: ATORVASTATIN
  4. TAMSULOSIN [Concomitant]
     Active Substance: TAMSULOSIN
  5. PROCTOCORT [Concomitant]
     Active Substance: HYDROCORTISONE
  6. METOPROLOL TARTRATE. [Concomitant]
     Active Substance: METOPROLOL TARTRATE
  7. GABAPENTIN. [Concomitant]
     Active Substance: GABAPENTIN
  8. PANTOPRAZOLE [Concomitant]
     Active Substance: PANTOPRAZOLE

REACTIONS (3)
  - Liver disorder [None]
  - Haemorrhage [None]
  - Product dose omission issue [None]

NARRATIVE: CASE EVENT DATE: 20200929
